FAERS Safety Report 20187316 (Version 4)
Quarter: 2022Q3

REPORT INFORMATION
  Report Type: Other
  Country: CA (occurrence: None)
  Receive Date: 20211215
  Receipt Date: 20220905
  Transmission Date: 20221027
  Serious: No
  Sender: FDA-Public Use
  Company Number: CA-ROCHE-2977255

PATIENT
  Sex: Male

DRUGS (1)
  1. OCREVUS [Suspect]
     Active Substance: OCRELIZUMAB
     Indication: Relapsing-remitting multiple sclerosis
     Dosage: THEN 600 MG EVERY 6 MONTHS
     Route: 042
     Dates: start: 20200716

REACTIONS (4)
  - Influenza [Recovering/Resolving]
  - Fatigue [Recovering/Resolving]
  - Hypersensitivity [Unknown]
  - White blood cell count increased [Unknown]
